FAERS Safety Report 7450742-9 (Version None)
Quarter: 2011Q2

REPORT INFORMATION
  Report Type: 
  Country: None (occurrence: None)
  Receive Date: 20110502
  Receipt Date: 20110318
  Transmission Date: 20111010
  Serious: Yes (Hospitalization, Other)
  Sender: FDA-Public Use
  Company Number: US-BAYER-201028007NA

PATIENT
  Age: 21 Year
  Sex: Female

DRUGS (7)
  1. YAZ [Suspect]
     Indication: PRODUCT USED FOR UNKNOWN INDICATION
     Route: 048
  2. HYDROCODONE BITARTRATE [Concomitant]
     Dosage: 5MG/325MG FOUR TIMES DAILY AS NEEDED
  3. MULTI-VITAMINS [Concomitant]
     Dosage: 100 MG, QD
     Route: 048
  4. CONTRACEPTIVES NOS [Concomitant]
  5. ACETAMINOPHEN [Concomitant]
     Dosage: 5MG/ 325MG FOUR TIMES DAILY AS NEEDED
  6. DOCUSATE SODIUM [Concomitant]
     Dosage: 100 MG, BID
  7. TPN [Concomitant]
     Route: 048

REACTIONS (4)
  - HEPATIC NEOPLASM MALIGNANT [None]
  - LIVER DISORDER [None]
  - GALLBLADDER DISORDER [None]
  - CHOLECYSTITIS CHRONIC [None]
